FAERS Safety Report 14727009 (Version 1)
Quarter: 2018Q2

REPORT INFORMATION
  Report Type: Spontaneous
  Country: SE (occurrence: SE)
  Receive Date: 20180406
  Receipt Date: 20180406
  Transmission Date: 20180711
  Serious: Yes (Death, Hospitalization, Other)
  Sender: FDA-Public Use
  Company Number: SE-CIPLA LTD.-2018SE14462

PATIENT

DRUGS (5)
  1. PROPRANOLOL [Interacting]
     Active Substance: PROPRANOLOL HYDROCHLORIDE
     Indication: PRODUCT USED FOR UNKNOWN INDICATION
     Dosage: APPROX. 400 MG TABLETS; IN TOTAL
     Route: 065
  2. PARACETAMOL [Suspect]
     Active Substance: ACETAMINOPHEN
     Dosage: LOW TO MODERATE DOSES, TABLETS, UNK
     Route: 065
  3. NIFEDIPINE. [Suspect]
     Active Substance: NIFEDIPINE
     Indication: PRODUCT USED FOR UNKNOWN INDICATION
     Dosage: 100 MG TABLETS.
     Route: 065
  4. ZOPICLONE [Suspect]
     Active Substance: ZOPICLONE
     Indication: PRODUCT USED FOR UNKNOWN INDICATION
     Dosage: LOW TO MODERATE DOSES, TABLETS, UNK
     Route: 065
  5. CITALOPRAM [Suspect]
     Active Substance: CITALOPRAM HYDROBROMIDE
     Indication: PRODUCT USED FOR UNKNOWN INDICATION
     Dosage: TABLETS, LOW TO MODERATE DOSES
     Route: 065

REACTIONS (9)
  - Toxicity to various agents [Recovered/Resolved]
  - Death [Fatal]
  - Depression [Unknown]
  - Intentional overdose [Recovered/Resolved]
  - Drug interaction [Unknown]
  - Anuria [Recovered/Resolved]
  - Seizure [Recovered/Resolved]
  - Myocardial depression [Recovered/Resolved]
  - Suicide attempt [Unknown]
